FAERS Safety Report 5852030-0 (Version None)
Quarter: 2008Q3

REPORT INFORMATION
  Report Type: 
  Country: None (occurrence: None)
  Receive Date: 20080820
  Receipt Date: 20080812
  Transmission Date: 20090109
  Serious: Yes (Hospitalization)
  Sender: FDA-Public Use
  Company Number: FR-PFIZER INC-2008068184

PATIENT
  Sex: Female

DRUGS (1)
  1. SU-011,248 [Suspect]
     Indication: NON-SMALL CELL LUNG CANCER METASTATIC
     Dosage: DAILY DOSE:37.5MG-FREQ:EVERY DAY
     Route: 048
     Dates: start: 20080701, end: 20080801

REACTIONS (3)
  - APHTHOUS STOMATITIS [None]
  - ENANTHEMA [None]
  - URINARY TRACT INFECTION [None]
